FAERS Safety Report 5113292-0 (Version None)
Quarter: 2006Q3

REPORT INFORMATION
  Report Type: 
  Country: None (occurrence: None)
  Receive Date: 20060920
  Receipt Date: 20060905
  Transmission Date: 20061208
  Serious: Yes (Other)
  Sender: FDA-Public Use
  Company Number: US200607001936

PATIENT
  Age: 73 Year
  Sex: Female

DRUGS (4)
  1. ALIMTA [Suspect]
     Indication: NON-SMALL CELL LUNG CANCER RECURRENT
     Dosage: 500 MG/M2, INTRAVENOUS
     Route: 042
  2. FOLIC ACID [Concomitant]
  3. CYANOCOBALAMIN [Concomitant]
  4. DEXAMETHASONE TAB [Concomitant]

REACTIONS (3)
  - NERVOUSNESS [None]
  - PULMONARY TOXICITY [None]
  - RESPIRATORY DISTRESS [None]
